FAERS Safety Report 5056162-9 (Version None)
Quarter: 2006Q3

REPORT INFORMATION
  Report Type: 
  Country: None (occurrence: None)
  Receive Date: 20060720
  Receipt Date: 20060717
  Transmission Date: 20061208
  Serious: Yes (Hospitalization)
  Sender: FDA-Public Use
  Company Number: GB-GLAXOSMITHKLINE-B0431589A

PATIENT
  Age: 26 Year
  Sex: Male

DRUGS (1)
  1. LITHIUM CARBONATE [Suspect]
     Indication: BIPOLAR DISORDER
     Route: 048

REACTIONS (8)
  - ABDOMINAL PAIN [None]
  - DIABETIC KETOACIDOSIS [None]
  - DRUG WITHDRAWAL SYNDROME [None]
  - HYPOGLYCAEMIA [None]
  - POLYURIA [None]
  - THIRST [None]
  - TREMOR [None]
  - VOMITING [None]
